FAERS Safety Report 5883172-1 (Version None)
Quarter: 2008Q3

REPORT INFORMATION
  Report Type: 
  Country: None (occurrence: None)
  Receive Date: 20080914
  Receipt Date: 20080905
  Transmission Date: 20090109
  Serious: Yes (Hospitalization)
  Sender: FDA-Public Use
  Company Number: CH-JNJFOC-20080901082

PATIENT
  Age: 84 Year
  Sex: Female
  Weight: 46.5 kg

DRUGS (6)
  1. RISPERDAL [Suspect]
     Indication: DELUSION
     Route: 048
  2. RISPERDAL [Suspect]
     Indication: ABNORMAL BEHAVIOUR
     Route: 048
  3. SEROQUEL [Concomitant]
     Route: 048
  4. ZOLPIDEM [Concomitant]
     Route: 048
  5. MOTILIUM [Concomitant]
     Route: 048
  6. PREDNISONE TAB [Concomitant]
     Route: 048

REACTIONS (3)
  - BRONCHOPNEUMONIA [None]
  - DYSPHAGIA [None]
  - EXTRAPYRAMIDAL DISORDER [None]
